FAERS Safety Report 15557410 (Version 4)
Quarter: 2020Q3

REPORT INFORMATION
  Report Type: Report from Study
  Country: None (occurrence: US)
  Receive Date: 20181026
  Receipt Date: 20200717
  Transmission Date: 20201102
  Serious: No
  Sender: FDA-Public Use
  Company Number: US-ABBVIE-18K-163-2531712-00

PATIENT
  Age: 53 Year
  Sex: Male

DRUGS (11)
  1. METFORMIN [Concomitant]
     Active Substance: METFORMIN HYDROCHLORIDE
     Indication: BLOOD GLUCOSE INCREASED
  2. TIMOLOL. [Concomitant]
     Active Substance: TIMOLOL
     Indication: GLAUCOMA
  3. TIMOLOL. [Concomitant]
     Active Substance: TIMOLOL
     Indication: CATARACT
  4. DORZOLAMIDE [Concomitant]
     Active Substance: DORZOLAMIDE
     Indication: PRODUCT USED FOR UNKNOWN INDICATION
     Dates: end: 2020
  5. LIPITOR [Concomitant]
     Active Substance: ATORVASTATIN CALCIUM
     Indication: BLOOD CHOLESTEROL INCREASED
  6. PREDNISOLONE. [Concomitant]
     Active Substance: PREDNISOLONE
     Indication: GLAUCOMA
  7. HUMIRA [Suspect]
     Active Substance: ADALIMUMAB
     Indication: UVEITIS
     Route: 058
  8. HUMIRA [Suspect]
     Active Substance: ADALIMUMAB
     Indication: INTRAOCULAR PRESSURE DECREASED
     Route: 058
     Dates: start: 20200616
  9. FOLIC ACID. [Concomitant]
     Active Substance: FOLIC ACID
     Indication: VITAMIN SUPPLEMENTATION
  10. PREDNISOLONE. [Concomitant]
     Active Substance: PREDNISOLONE
     Indication: CATARACT
  11. METHOTREXATE. [Concomitant]
     Active Substance: METHOTREXATE
     Indication: HERNIA

REACTIONS (3)
  - Device dislocation [Not Recovered/Not Resolved]
  - Lacrimation increased [Not Recovered/Not Resolved]
  - Off label use [Unknown]

NARRATIVE: CASE EVENT DATE: 20200616
